FAERS Safety Report 7327631-3 (Version None)
Quarter: 2011Q1

REPORT INFORMATION
  Report Type: 
  Country: None (occurrence: None)
  Receive Date: 20110303
  Receipt Date: 20110216
  Transmission Date: 20110831
  Serious: Yes (Other)
  Sender: FDA-Public Use
  Company Number: US-CELGENEUS-163-22393-11022295

PATIENT

DRUGS (1)
  1. ISTODAX [Suspect]
     Route: 051

REACTIONS (6)
  - HYPONATRAEMIA [None]
  - INSOMNIA [None]
  - VOMITING [None]
  - LYMPHOPENIA [None]
  - THROMBOCYTOPENIA [None]
  - NAUSEA [None]
